FAERS Safety Report 13184590 (Version 2)
Quarter: 2017Q1

REPORT INFORMATION
  Report Type: Report from Study
  Country: US (occurrence: US)
  Receive Date: 20170203
  Receipt Date: 20170314
  Transmission Date: 20170428
  Serious: Yes (Other)
  Sender: FDA-Public Use
  Company Number: US-009507513-1701USA012153

PATIENT

DRUGS (3)
  1. PEXIDARTINIB [Suspect]
     Active Substance: PEXIDARTINIB
     Dosage: 400MG BID DAILY 7 DAYS/WEEK
  2. TEMODAR [Suspect]
     Active Substance: TEMOZOLOMIDE
     Indication: GLIOBLASTOMA
     Dosage: UNK
  3. PEXIDARTINIB [Suspect]
     Active Substance: PEXIDARTINIB
     Indication: GLIOBLASTOMA
     Dosage: 400MG BID DAILY 5 DAYS/WEEK DURING

REACTIONS (1)
  - Neutropenia [Unknown]
